FAERS Safety Report 4646777-1 (Version None)
Quarter: 2005Q2

REPORT INFORMATION
  Report Type: 
  Country: None (occurrence: None)
  Receive Date: 20050426
  Receipt Date: 20050426
  Transmission Date: 20051028
  Serious: Yes (Life-Threatening)
  Sender: FDA-Public Use
  Company Number: None

PATIENT
  Age: 55 Year
  Sex: Male
  Weight: 90.7194 kg

DRUGS (11)
  1. ETANERCEPT    25MG  2 TIMES/ WEEK [Suspect]
     Indication: RHEUMATOID ARTHRITIS
     Dosage: 2/WEEK
     Dates: start: 20030610, end: 20050310
  2. ELAVIL [Concomitant]
  3. NEURONTIN [Concomitant]
  4. LISPRO [Concomitant]
  5. KLONIPIN [Concomitant]
  6. MIRAPEX [Concomitant]
  7. COREG [Concomitant]
  8. DIOVAN [Concomitant]
  9. HUMALOG [Concomitant]
  10. ASPRIN [Concomitant]
  11. HYDROCODONE BITARTRATE [Concomitant]

REACTIONS (1)
  - DIFFUSE LARGE B-CELL LYMPHOMA [None]
